FAERS Safety Report 7763469 (Version 3)
Quarter: 2012Q4

REPORT INFORMATION
  Report Type: 
  Country: CA (occurrence: CA)
  Receive Date: 20110118
  Receipt Date: 20121109
  Transmission Date: 20130627
  Serious: Yes (Death, Hospitalization)
  Sender: FDA-Public Use
  Company Number: PHHY2009CA32865

PATIENT
  Sex: Female

DRUGS (6)
  1. SANDOSTATIN LAR [Suspect]
     Indication: NEUROENDOCRINE CARCINOMA
     Dosage: 60 mg, QMO
     Route: 030
     Dates: start: 200310
  2. SANDOSTATIN LAR [Suspect]
     Dosage: 40 mg every 4 weeks
     Route: 030
     Dates: start: 20050102
  3. SANDOSTATIN LAR [Suspect]
     Dosage: 60 mg every 4 weeks
     Dates: end: 20101221
  4. DILTIAZEM [Concomitant]
  5. PANTOPRAZOLE [Concomitant]
  6. NOVOLIN 70/30 [Concomitant]

REACTIONS (12)
  - Malignant neoplasm progression [Fatal]
  - Clostridium difficile colitis [Unknown]
  - Cystitis [Unknown]
  - Pneumonia [Unknown]
  - Pain [Unknown]
  - Dyspnoea [Unknown]
  - Haemoglobin decreased [Unknown]
  - Sinusitis [Unknown]
  - Syringe issue [Unknown]
  - Injection site mass [Recovered/Resolved]
  - Nausea [Unknown]
  - Vomiting [Unknown]
